FAERS Safety Report 4987390-6 (Version None)
Quarter: 2006Q2

REPORT INFORMATION
  Report Type: 
  Country: None (occurrence: None)
  Receive Date: 20060501
  Receipt Date: 20060421
  Transmission Date: 20061013
  Serious: Yes (Hospitalization)
  Sender: FDA-Public Use
  Company Number: PHMT2006CA01118

PATIENT
  Sex: Female

DRUGS (2)
  1. FEMARA [Concomitant]
     Dosage: 2.5 MG, QD
  2. ZOMETA [Suspect]
     Indication: METASTASES TO BONE
     Dosage: 4 MG  EVERY 28 DAYS
     Route: 042
     Dates: start: 20050101

REACTIONS (3)
  - ANGINA PECTORIS [None]
  - CHEST PAIN [None]
  - TROPONIN INCREASED [None]
